FAERS Safety Report 16271270 (Version 1)
Quarter: 2019Q2

REPORT INFORMATION
  Report Type: Spontaneous
  Country: US (occurrence: US)
  Receive Date: 20190505
  Receipt Date: 20190505
  Transmission Date: 20190711
  Serious: No
  Sender: FDA-Public Use
  Company Number: US-009507513-1905USA000775

PATIENT
  Age: 33 Year
  Sex: Female

DRUGS (7)
  1. PROGESTERONE. [Concomitant]
     Active Substance: PROGESTERONE
     Dosage: 50 MG/ML
  2. FOLLISTIM AQ [Suspect]
     Active Substance: FOLLITROPIN
     Indication: INFERTILITY
     Dosage: 300 INTERNATIONAL UNIT, QD
     Route: 058
     Dates: start: 20190405
  3. LEUPROLIDE [Concomitant]
     Active Substance: LEUPROLIDE
     Dosage: 1 MG/0.2 ML
  4. ASPIRIN. [Concomitant]
     Active Substance: ASPIRIN
  5. GANIRELIX ACETATE INJECTION [Suspect]
     Active Substance: GANIRELIX ACETATE
     Indication: INFERTILITY
     Dosage: 250 UGM, DAILY
     Route: 058
     Dates: start: 20190405
  6. ENDOMETRIN [Concomitant]
     Active Substance: PROGESTERONE
  7. DOXYCYCLINE. [Concomitant]
     Active Substance: DOXYCYCLINE

REACTIONS (1)
  - Pruritus [Unknown]

NARRATIVE: CASE EVENT DATE: 20190430
